FAERS Safety Report 20761052 (Version 2)
Quarter: 2022Q3

REPORT INFORMATION
  Report Type: Report from Study
  Country: US (occurrence: US)
  Receive Date: 20220428
  Receipt Date: 20220705
  Transmission Date: 20221027
  Serious: Yes (Other)
  Sender: FDA-Public Use
  Company Number: US-TAKEDA-2021TUS022373

PATIENT
  Age: 45 Year
  Sex: Female
  Weight: 80 kg

DRUGS (31)
  1. HUMAN IMMUNOGLOBULIN G [Suspect]
     Active Substance: HUMAN IMMUNOGLOBULIN G
     Indication: Polyneuropathy
     Dosage: 30 GRAM, Q2WEEKS
     Route: 042
     Dates: start: 20220209
  2. HUMAN IMMUNOGLOBULIN G [Suspect]
     Active Substance: HUMAN IMMUNOGLOBULIN G
     Indication: Sarcoidosis
     Dosage: 30 GRAM
     Route: 042
     Dates: start: 20220309
  3. DIPHENHYDRAMINE HYDROCHLORIDE [Concomitant]
     Active Substance: DIPHENHYDRAMINE HYDROCHLORIDE
  4. HEPARIN [Concomitant]
     Active Substance: HEPARIN SODIUM
  5. FUROSEMIDE [Concomitant]
     Active Substance: FUROSEMIDE
  6. POTASSIUM [Concomitant]
     Active Substance: POTASSIUM
  7. EPINEPHRINE [Concomitant]
     Active Substance: EPINEPHRINE
  8. SODIUM CHLORIDE [Concomitant]
     Active Substance: SODIUM CHLORIDE
  9. PROCHLORPERAZINE [Concomitant]
     Active Substance: PROCHLORPERAZINE
  10. TRULICITY [Concomitant]
     Active Substance: DULAGLUTIDE
  11. BIOTIN [Concomitant]
     Active Substance: BIOTIN
  12. COMPAZINE [Concomitant]
     Active Substance: PROCHLORPERAZINE MALEATE
  13. ACETAMINOPHEN [Concomitant]
     Active Substance: ACETAMINOPHEN
  14. CYCLOBENZAPRINE [Concomitant]
     Active Substance: CYCLOBENZAPRINE
  15. ACETAMINOPHEN\OXYCODONE HYDROCHLORIDE\OXYCODONE TEREPHTHALATE [Concomitant]
     Active Substance: ACETAMINOPHEN\OXYCODONE HYDROCHLORIDE\OXYCODONE TEREPHTHALATE
  16. GABAPENTIN [Concomitant]
     Active Substance: GABAPENTIN
  17. SODIUM CHLORIDE [Concomitant]
     Active Substance: SODIUM CHLORIDE
  18. METFORMIN HYDROCHLORIDE [Concomitant]
     Active Substance: METFORMIN HYDROCHLORIDE
  19. CLONAZEPAM [Concomitant]
     Active Substance: CLONAZEPAM
  20. SOLU-CORTEF MIX O [Concomitant]
  21. LISINOPRIL [Concomitant]
     Active Substance: LISINOPRIL
  22. KETOROLAC TROMETHAMINE [Concomitant]
     Active Substance: KETOROLAC TROMETHAMINE
  23. Lmx [Concomitant]
  24. ADRENALIN [Concomitant]
     Active Substance: EPINEPHRINE
  25. FOLIC ACID [Concomitant]
     Active Substance: FOLIC ACID
  26. BACLOFEN [Concomitant]
     Active Substance: BACLOFEN
  27. EMGALITY [Concomitant]
     Active Substance: GALCANEZUMAB-GNLM
  28. ZYRTEC [Concomitant]
     Active Substance: CETIRIZINE HYDROCHLORIDE
  29. RIZATRIPTAN [Concomitant]
     Active Substance: RIZATRIPTAN
  30. TAMSULOSIN [Concomitant]
     Active Substance: TAMSULOSIN
  31. TOPAMAX [Concomitant]
     Active Substance: TOPIRAMATE

REACTIONS (6)
  - Spinal operation [Recovered/Resolved]
  - Muscle spasms [Unknown]
  - Back pain [Unknown]
  - Myopathy [Unknown]
  - Off label use [Unknown]
  - Rash [Recovered/Resolved]

NARRATIVE: CASE EVENT DATE: 20220209
